FAERS Safety Report 6097900-6 (Version None)
Quarter: 2009Q1

REPORT INFORMATION
  Report Type: 
  Country: None (occurrence: None)
  Receive Date: 20090227
  Receipt Date: 20090219
  Transmission Date: 20090719
  Serious: Yes (Hospitalization, Other)
  Sender: FDA-Public Use
  Company Number: PHHY2009FR00945

PATIENT
  Sex: Female
  Weight: 48 kg

DRUGS (2)
  1. ACLASTA [Suspect]
     Indication: OSTEOPOROSIS
     Dosage: 5 MG
     Route: 042
     Dates: start: 20080801
  2. AMLODIPINE [Concomitant]
     Dosage: UNK
     Dates: start: 19950101

REACTIONS (3)
  - COLITIS COLLAGENOUS [None]
  - DEHYDRATION [None]
  - DIARRHOEA [None]
